FAERS Safety Report 6303305-2 (Version None)
Quarter: 2009Q3

REPORT INFORMATION
  Report Type: 
  Country: None (occurrence: None)
  Receive Date: 20090810
  Receipt Date: 20090423
  Transmission Date: 20100115
  Serious: No
  Sender: FDA-Public Use
  Company Number: A0779188A

PATIENT
  Age: 35 Year
  Sex: Female
  Weight: 58.2 kg

DRUGS (2)
  1. TREXIMET [Suspect]
     Indication: MIGRAINE
     Dosage: 85MG SINGLE DOSE
     Route: 048
     Dates: start: 20090402, end: 20090402
  2. PAMELOR [Concomitant]
     Dosage: 10G AT NIGHT
     Route: 048
     Dates: start: 20090401

REACTIONS (6)
  - CHEST DISCOMFORT [None]
  - CHOKING SENSATION [None]
  - ERYTHEMA [None]
  - HYPERSENSITIVITY [None]
  - MUSCLE TIGHTNESS [None]
  - NAUSEA [None]
